FAERS Safety Report 15419876 (Version 1)
Quarter: 2018Q3

REPORT INFORMATION
  Report Type: Spontaneous
  Country: GB (occurrence: GB)
  Receive Date: 20180924
  Receipt Date: 20180924
  Transmission Date: 20181010
  Serious: Yes (Hospitalization)
  Sender: FDA-Public Use
  Company Number: GB-TEVA-2018-GB-957899

PATIENT
  Age: 16 Year
  Sex: Female
  Weight: 68.7 kg

DRUGS (4)
  1. QVAR [Concomitant]
     Active Substance: BECLOMETHASONE DIPROPIONATE
  2. METHYLPREDNISOLONE. [Suspect]
     Active Substance: METHYLPREDNISOLONE
     Indication: SCLERODERMA
     Dosage: 1 GRAM DAILY;
     Route: 042
     Dates: start: 20180824, end: 20180824
  3. METHOTREXATE. [Suspect]
     Active Substance: METHOTREXATE
     Indication: SCLERODERMA
     Route: 058
     Dates: start: 20180827, end: 20180827
  4. SALBUTAMOL [Concomitant]
     Active Substance: ALBUTEROL

REACTIONS (7)
  - Malaise [Unknown]
  - Generalised tonic-clonic seizure [Recovered/Resolved]
  - Headache [Unknown]
  - Dizziness [Unknown]
  - Sensory disturbance [Unknown]
  - Posterior reversible encephalopathy syndrome [Unknown]
  - Nausea [Unknown]

NARRATIVE: CASE EVENT DATE: 201808
